FAERS Safety Report 7818212-3 (Version None)
Quarter: 2011Q4

REPORT INFORMATION
  Report Type: 
  Country: None (occurrence: None)
  Receive Date: 20111017
  Receipt Date: 20111006
  Transmission Date: 20120403
  Serious: Yes (Hospitalization)
  Sender: FDA-Public Use
  Company Number: PHHY2011DK88155

PATIENT
  Sex: Female

DRUGS (4)
  1. METHOTREXAT ^SANDOZ^ [Suspect]
     Indication: JUVENILE ARTHRITIS
     Dosage: STOPDATO/SENESTE: 02AUG2011
     Route: 048
     Dates: start: 20090203
  2. HUMIRA [Suspect]
     Indication: JUVENILE ARTHRITIS
     Dosage: 40 MG EVERY OTHER WEEK
     Dates: start: 20110103, end: 20110802
  3. METHOTREXATE [Suspect]
     Indication: JUVENILE ARTHRITIS
     Dosage: UNK
     Route: 048
     Dates: start: 20090203, end: 20110802
  4. HUMIRA [Suspect]
     Dosage: DOSIS: 40  MG HVER ANDEN UGE. STOPDATO/SENESTE: 02AUG2011.
     Dates: start: 20110103

REACTIONS (1)
  - HAEMOLYTIC ANAEMIA [None]
